FAERS Safety Report 6400112-7 (Version None)
Quarter: 2009Q4

REPORT INFORMATION
  Report Type: 
  Country: None (occurrence: None)
  Receive Date: 20091014
  Receipt Date: 20091004
  Transmission Date: 20100525
  Serious: Yes (Other)
  Sender: FDA-Public Use
  Company Number: CA-ABBOTT-09P-028-0600455-00

PATIENT
  Sex: Male
  Weight: 40.86 kg

DRUGS (8)
  1. HUMIRA [Suspect]
     Indication: UVEITIS
     Dosage: ^A LITTLE MORE THAN 26 MG^ WEEKLY
     Route: 058
     Dates: start: 20070307
  2. HUMIRA [Suspect]
     Route: 058
     Dates: end: 20090930
  3. OPHTHOTATE [Concomitant]
     Indication: DRUG USE FOR UNKNOWN INDICATION
     Dosage: 1 DROP EVERY HOUR IN RIGHT EYE   1 DROP IN THE LEFT EYE EVERY 2 HOURS
  4. MAXIDEX [Concomitant]
     Indication: DRUG USE FOR UNKNOWN INDICATION
     Dosage: APPLIED TO BOTH EYES QHS
  5. LEVOBUNOLOL HCL [Concomitant]
     Indication: DRUG USE FOR UNKNOWN INDICATION
     Dosage: 1 DROP IN RIGHT EYE QAM AND QHS   1 DROP IN LEFT EYE QHS
  6. CYCLOGYL [Concomitant]
     Indication: DRUG USE FOR UNKNOWN INDICATION
     Dosage: 1 DROP IN EACH EYE QHS
  7. IBUPROFEN [Concomitant]
     Indication: DRUG USE FOR UNKNOWN INDICATION
  8. TYLENOL (CAPLET) [Concomitant]
     Indication: DRUG USE FOR UNKNOWN INDICATION

REACTIONS (8)
  - ANAPHYLACTIC REACTION [None]
  - BURNING SENSATION [None]
  - CHEST DISCOMFORT [None]
  - HEART RATE INCREASED [None]
  - PRURITUS GENERALISED [None]
  - THROAT IRRITATION [None]
  - THROAT TIGHTNESS [None]
  - TREMOR [None]
